FAERS Safety Report 22214463 (Version 3)
Quarter: 2023Q2

REPORT INFORMATION
  Report Type: Spontaneous
  Country: DE (occurrence: DE)
  Receive Date: 20230414
  Receipt Date: 20230505
  Transmission Date: 20230721
  Serious: Yes (Other)
  Sender: FDA-Public Use
  Company Number: DE-002147023-NVSC2021DE230103

PATIENT
  Sex: Female
  Weight: 58.5 kg

DRUGS (21)
  1. ROMIPLOSTIM [Suspect]
     Active Substance: ROMIPLOSTIM
     Indication: Therapeutic response decreased
     Dosage: 60 UG (TWO ADMINISTRATIONS)
     Route: 058
     Dates: start: 20211123, end: 20211216
  2. ROMIPLOSTIM [Suspect]
     Active Substance: ROMIPLOSTIM
     Indication: Thrombocytopenia
  3. ELTROMBOPAG OLAMINE [Suspect]
     Active Substance: ELTROMBOPAG OLAMINE
     Indication: Immune thrombocytopenia
     Dosage: 75 MG, QD (TABLET)
     Route: 048
     Dates: start: 20210817, end: 20211004
  4. ELTROMBOPAG OLAMINE [Suspect]
     Active Substance: ELTROMBOPAG OLAMINE
     Dosage: 50 MG, QD (TABLET)
     Route: 048
     Dates: start: 20211014, end: 20211123
  5. ELTROMBOPAG OLAMINE [Suspect]
     Active Substance: ELTROMBOPAG OLAMINE
     Dosage: 50 MG, QD (TABLET)
     Route: 048
     Dates: start: 20210608, end: 20210816
  6. PREDNISOLONE [Suspect]
     Active Substance: PREDNISOLONE
     Indication: Immune thrombocytopenia
     Dosage: 12.5 MG (ONCE)
     Route: 048
     Dates: start: 20220103
  7. PREDNISOLONE [Suspect]
     Active Substance: PREDNISOLONE
     Dosage: 15 MG (ONCE)
     Route: 048
     Dates: start: 20211221, end: 20220102
  8. PREDNISOLONE [Suspect]
     Active Substance: PREDNISOLONE
     Dosage: 7.5 MG (ONCE)
     Route: 048
     Dates: start: 20220127
  9. PREDNISOLONE [Suspect]
     Active Substance: PREDNISOLONE
     Dosage: 5 MG (ONCE)
     Route: 048
     Dates: start: 20210916, end: 20210922
  10. PREDNISOLONE [Suspect]
     Active Substance: PREDNISOLONE
     Dosage: 20 MG (ONCE)
     Route: 048
     Dates: start: 20211207, end: 20211220
  11. PREDNISOLONE [Suspect]
     Active Substance: PREDNISOLONE
     Dosage: 2.5 MG (ONCE)
     Route: 048
     Dates: start: 20210923, end: 20210930
  12. PREDNISOLONE [Suspect]
     Active Substance: PREDNISOLONE
     Dosage: 20 MG (ONCE)
     Route: 048
     Dates: start: 20210902, end: 20210908
  13. PREDNISOLONE [Suspect]
     Active Substance: PREDNISOLONE
     Dosage: 10 MG (ONCE)
     Route: 048
     Dates: start: 20210909, end: 20210915
  14. CORTISONE [Suspect]
     Active Substance: CORTISONE
     Indication: Product used for unknown indication
     Dosage: UNK
     Route: 065
  15. AMLODIPINE [Concomitant]
     Active Substance: AMLODIPINE BESYLATE
     Indication: Hypertension
     Dosage: 5 MG, QD (IN THE MORNING)
     Route: 048
     Dates: start: 20210511
  16. FLUOXETINE [Concomitant]
     Active Substance: FLUOXETINE HYDROCHLORIDE
     Indication: Depression
     Dosage: 20 MG, ONCE/SINGLE
     Route: 048
     Dates: start: 2005
  17. FLUOXETINE [Concomitant]
     Active Substance: FLUOXETINE HYDROCHLORIDE
     Dosage: 20 MG, QD (IN THE MORNING)
     Route: 048
     Dates: start: 2009
  18. ENOXAPARIN SODIUM [Concomitant]
     Active Substance: ENOXAPARIN SODIUM
     Indication: Anticoagulant therapy
     Dosage: 10000 IU, ONCE/SINGLE
     Route: 058
     Dates: start: 20211014
  19. ENOXAPARIN SODIUM [Concomitant]
     Active Substance: ENOXAPARIN SODIUM
     Dosage: 4000 IU, ONCE/SINGLE
     Route: 058
     Dates: start: 20211115
  20. ENOXAPARIN SODIUM [Concomitant]
     Active Substance: ENOXAPARIN SODIUM
     Dosage: 6000 IU, ONCE/SINGLE
     Route: 058
     Dates: start: 20211012
  21. CANDESARTAN [Concomitant]
     Active Substance: CANDESARTAN
     Indication: Hypertension
     Dosage: 32 MG, QD (IN THE MORNING)
     Route: 048
     Dates: start: 20180206

REACTIONS (4)
  - Systemic lupus erythematosus [Not Recovered/Not Resolved]
  - Therapeutic response decreased [Not Recovered/Not Resolved]
  - Drug intolerance [Unknown]
  - Drug ineffective [Recovering/Resolving]

NARRATIVE: CASE EVENT DATE: 20211103
